FAERS Safety Report 6442101-2 (Version None)
Quarter: 2009Q4

REPORT INFORMATION
  Report Type: 
  Country: None (occurrence: None)
  Receive Date: 20091116
  Receipt Date: 20091103
  Transmission Date: 20100525
  Serious: Yes (Other)
  Sender: FDA-Public Use
  Company Number: PHEH2008US08144

PATIENT
  Sex: Male

DRUGS (25)
  1. AREDIA [Suspect]
     Dosage: 120 MG, UNK
     Dates: start: 19980506, end: 20001012
  2. AREDIA [Suspect]
     Dosage: 90 MG, UNK
     Dates: start: 20001115
  3. ZOMETA [Suspect]
     Dosage: 4 MG
     Dates: start: 20050415
  4. TENORMIN [Concomitant]
     Dosage: 25 MG, UNK
  5. HYTRIN [Concomitant]
  6. CELEBREX [Concomitant]
  7. FLOMAX [Concomitant]
  8. FOLIC ACID [Concomitant]
  9. LIPITOR [Concomitant]
  10. LOTENSIN [Concomitant]
  11. DIOVAN [Concomitant]
  12. ASPIRIN [Concomitant]
     Dosage: 81 MG, UNK
  13. AMOXICILLIN [Concomitant]
  14. VIOXX [Concomitant]
  15. CIPRO [Concomitant]
  16. ATENOLOL [Concomitant]
  17. DECADRON                                /CAN/ [Concomitant]
  18. PRILOSEC [Concomitant]
  19. ASPIRIN [Concomitant]
  20. MEDROL [Concomitant]
  21. PLAVIX [Concomitant]
  22. PROSCAR [Concomitant]
     Dosage: 5 MG, QD
  23. AUGMENTIN                               /SCH/ [Concomitant]
     Dosage: UNK
  24. VITAMIN B COMPLEX CAP [Concomitant]
     Dosage: UNK
  25. ATENOLOL [Concomitant]
     Dosage: UNK

REACTIONS (14)
  - ANHEDONIA [None]
  - ANXIETY [None]
  - BASAL CELL CARCINOMA [None]
  - BLOOD CREATININE INCREASED [None]
  - DISABILITY [None]
  - GAMMOPATHY [None]
  - HYPERTROPHY [None]
  - INJURY [None]
  - OSTEONECROSIS [None]
  - PAIN [None]
  - PARAPROTEINAEMIA [None]
  - RENAL FAILURE [None]
  - SQUAMOUS CELL CARCINOMA [None]
  - VASCULAR CALCIFICATION [None]
